FAERS Safety Report 9304510 (Version 5)
Quarter: 2013Q3

REPORT INFORMATION
  Report Type: Spontaneous
  Country: US (occurrence: US)
  Receive Date: 20130523
  Receipt Date: 20130725
  Transmission Date: 20140515
  Serious: Yes (Hospitalization, Other)
  Sender: FDA-Public Use
  Company Number: US-AMGEN-USASP2013034466

PATIENT
  Age: 63 Year
  Sex: Female
  Weight: 78 kg

DRUGS (17)
  1. EPOGEN [Suspect]
     Indication: RENAL FAILURE CHRONIC
     Dosage: 4000 UNIT, QWK
     Route: 058
     Dates: start: 20120927
  2. ASA [Concomitant]
     Indication: CARDIAC DISORDER
     Dosage: 81 MG, QD
     Route: 048
     Dates: start: 20130416
  3. GABAPENTIN [Concomitant]
     Indication: NEUROPATHY PERIPHERAL
     Dosage: 600 MG, TID
     Route: 048
  4. RENVELA [Concomitant]
     Indication: BLOOD PHOSPHORUS DECREASED
     Dosage: UNK 2 TABS WITH MEAL
  5. PLAVIX [Concomitant]
     Indication: STENT PLACEMENT
     Dosage: 75 MG, DAILY
     Route: 048
  6. LIPITOR [Concomitant]
     Dosage: 40 MG,DAILY
     Route: 048
  7. PREDNISONE [Concomitant]
     Dosage: 40 MGX7
  8. LISINOPRIL [Concomitant]
     Dosage: 40 MG,DAILY
  9. METOPROLOL [Concomitant]
     Dosage: 50 MG, QD
  10. NOVOLOG [Concomitant]
     Dosage: 35 UNIT, 70/30 AM/PM
  11. HUMALOG [Concomitant]
     Dosage: 75/25
  12. AMLODIPINE [Concomitant]
     Dosage: 10 MG, DAILY
  13. VITAMIN B [Concomitant]
     Dosage: UNK UNK, QD
     Route: 048
  14. TORSEMIDE [Concomitant]
     Dosage: 20 MG, BID
     Route: 048
  15. SINEMET [Concomitant]
     Dosage: 25/100 UNK, QHS
  16. REGLAN                             /00041901/ [Concomitant]
     Dosage: 5 MG, BID
  17. OMEPRAZOLE [Concomitant]
     Dosage: 20 MG, QD

REACTIONS (6)
  - Refractory cytopenia with unilineage dysplasia [Unknown]
  - Cardiomegaly [Unknown]
  - Chest pain [Not Recovered/Not Resolved]
  - Pneumonia [Not Recovered/Not Resolved]
  - Drug resistance [Not Recovered/Not Resolved]
  - Myocardial infarction [Not Recovered/Not Resolved]
